FAERS Safety Report 19178726 (Version 1)
Quarter: 2021Q2

REPORT INFORMATION
  Report Type: Report from Study
  Country: US (occurrence: US)
  Receive Date: 20210426
  Receipt Date: 20210426
  Transmission Date: 20210717
  Serious: No
  Sender: FDA-Public Use
  Company Number: US-BIOVITRUM-2021US1182

PATIENT
  Sex: Female

DRUGS (12)
  1. FLONASE [Concomitant]
     Active Substance: FLUTICASONE PROPIONATE
  2. VITAMIN D [Concomitant]
     Active Substance: VITAMIN D NOS
  3. CLOBETASOL [Concomitant]
     Active Substance: CLOBETASOL
     Dosage: VAGINALLY ONCE WEEKLY PRN
     Route: 067
  4. TRIAMCINOLONE [Concomitant]
     Active Substance: TRIAMCINOLONE
  5. AMLODIPINE [Concomitant]
     Active Substance: AMLODIPINE BESYLATE
  6. KINERET [Suspect]
     Active Substance: ANAKINRA
     Indication: RHEUMATOID ARTHRITIS
     Route: 058
     Dates: start: 20190412
  7. PREDNISONE. [Concomitant]
     Active Substance: PREDNISONE
     Dosage: 4 TO 5 TABLETS
  8. AZELEX [Concomitant]
     Active Substance: AZELAIC ACID
     Dosage: 20 PERCENT
  9. HYDROCHLOROTHIAZIDE. [Concomitant]
     Active Substance: HYDROCHLOROTHIAZIDE
  10. ATENOLOL. [Concomitant]
     Active Substance: ATENOLOL
  11. SIMVASTATIN. [Concomitant]
     Active Substance: SIMVASTATIN
  12. KETOCONAZOLE. [Concomitant]
     Active Substance: KETOCONAZOLE

REACTIONS (4)
  - Spinal osteoarthritis [Unknown]
  - Rash [Unknown]
  - Vitamin D decreased [Unknown]
  - Blood cholesterol increased [Unknown]
